FAERS Safety Report 23691795 (Version 1)
Quarter: 2024Q2

REPORT INFORMATION
  Report Type: Spontaneous
  Country: SE (occurrence: SE)
  Receive Date: 20240401
  Receipt Date: 20240401
  Transmission Date: 20240716
  Serious: Yes (Other)
  Sender: FDA-Public Use
  Company Number: None

PATIENT
  Age: 33 Year
  Sex: Female

DRUGS (1)
  1. ARIPIPRAZOLE [Suspect]
     Active Substance: ARIPIPRAZOLE
     Indication: Dissociative disorder
     Dosage: ARIPIPRAZOLE TEVA
     Route: 048
     Dates: start: 20220525, end: 20240304

REACTIONS (2)
  - Gaming disorder [Unknown]
  - Impulsive behaviour [Unknown]
